FAERS Safety Report 10140762 (Version 1)
Quarter: 2014Q2

REPORT INFORMATION
  Report Type: Spontaneous
  Country: US (occurrence: US)
  Receive Date: 20140429
  Receipt Date: 20140429
  Transmission Date: 20141212
  Serious: Yes (Other)
  Sender: FDA-Public Use
  Company Number: CHPA2014US005785

PATIENT
  Age: 72 Year
  Sex: Female

DRUGS (6)
  1. VOLTAREN GEL [Suspect]
     Indication: OSTEOARTHRITIS
     Dosage: 4 G, TID
     Route: 061
     Dates: start: 20140408, end: 20140423
  2. VOLTAREN GEL [Suspect]
     Indication: ROTATOR CUFF SYNDROME
  3. VOLTAREN GEL [Suspect]
     Indication: OFF LABEL USE
  4. VOLTAREN GEL [Suspect]
     Indication: DRUG ADMINISTERED AT INAPPROPRIATE SITE
  5. VOLTAREN GEL [Suspect]
     Indication: OFF LABEL USE
  6. VOLTAREN [Suspect]
     Dosage: UNK
     Route: 065

REACTIONS (3)
  - Swelling [Recovering/Resolving]
  - Inappropriate schedule of drug administration [Unknown]
  - Drug administration error [Unknown]
